FAERS Safety Report 7926919-2 (Version None)
Quarter: 2011Q4

REPORT INFORMATION
  Report Type: 
  Country: None (occurrence: None)
  Receive Date: 20111118
  Receipt Date: 20111106
  Transmission Date: 20120403
  Serious: Yes (Hospitalization)
  Sender: FDA-Public Use
  Company Number: CA-ELI_LILLY_AND_COMPANY-CA201111001957

PATIENT
  Age: 60 Year
  Sex: Female

DRUGS (5)
  1. CALTRATE                           /00944201/ [Concomitant]
  2. FORTEO [Suspect]
     Dosage: 20 UG, QD
     Route: 058
     Dates: start: 20111019, end: 20111020
  3. ASPIRIN [Concomitant]
     Dosage: 81 MG, UNK
  4. CALCIUM [Concomitant]
  5. FORTEO [Suspect]
     Indication: OSTEOPOROSIS
     Dosage: 20 UG, QD
     Route: 058
     Dates: start: 20110926, end: 20111018

REACTIONS (5)
  - NASOPHARYNGITIS [None]
  - CONFUSIONAL STATE [None]
  - BLOOD POTASSIUM DECREASED [None]
  - DRUG DOSE OMISSION [None]
  - BLOOD CALCIUM INCREASED [None]
